FAERS Safety Report 22382323 (Version 1)
Quarter: 2023Q2

REPORT INFORMATION
  Report Type: Spontaneous
  Country: CA (occurrence: CA)
  Receive Date: 20230530
  Receipt Date: 20230530
  Transmission Date: 20230722
  Serious: Yes (Other)
  Sender: FDA-Public Use
  Company Number: CA-Clinigen Group PLC/ Clinigen Healthcare Ltd-CA-CLGN-23-00181

PATIENT
  Age: 21 Year
  Sex: Female

DRUGS (8)
  1. FOSCARNET SODIUM [Suspect]
     Active Substance: FOSCARNET SODIUM
     Indication: Cytomegalovirus infection reactivation
     Dosage: 90 MILLIGRAM/KILOGRAM, BID (TOTAL DOSE: 4320 MG)
     Route: 042
     Dates: start: 20200820, end: 20200914
  2. FOSCARNET SODIUM [Suspect]
     Active Substance: FOSCARNET SODIUM
     Dosage: 4320 MILLIGRAM
     Route: 042
     Dates: start: 20200923, end: 20201031
  3. GANCICLOVIR [Concomitant]
     Active Substance: GANCICLOVIR
     Indication: Cytomegalovirus infection reactivation
     Dosage: 225 MILLIGRAM
     Route: 042
     Dates: start: 20200729
  4. LETERMOVIR [Concomitant]
     Active Substance: LETERMOVIR
     Indication: Antiviral prophylaxis
     Dosage: UNK UNK, QD
     Route: 048
     Dates: start: 20200821, end: 20200916
  5. LETERMOVIR [Concomitant]
     Active Substance: LETERMOVIR
     Dosage: UNK UNK, QD
     Route: 048
     Dates: start: 20200924, end: 20201031
  6. ACYCLOVIR [Concomitant]
     Active Substance: ACYCLOVIR
     Indication: Prophylaxis
     Dosage: INTERMITTENT USE DURING GIVEN PERIOD; WHEN ADMINISTERED, IT WAS BID OR TID
     Route: 048
     Dates: start: 20200606, end: 20201031
  7. FLUCONAZOLE [Concomitant]
     Active Substance: FLUCONAZOLE
     Indication: Prophylaxis
     Dosage: INTERMITTENT USE DURING GIVEN PERIOD;, QD
     Route: 048
     Dates: start: 20200606, end: 20201031
  8. SEPTRA [Concomitant]
     Active Substance: SULFAMETHOXAZOLE\TRIMETHOPRIM
     Indication: Prophylaxis
     Dosage: INTERMITTENT USE DURING GIVEN PERIOD; DOUBLE STRENGTH TABLET ON MONDAY, WEDNESDAY, AND FRIDAY.
     Route: 048
     Dates: start: 20200716, end: 20210224

REACTIONS (2)
  - Graft versus host disease in gastrointestinal tract [Recovering/Resolving]
  - Nephropathy toxic [Recovered/Resolved]
